FAERS Safety Report 8333414-8 (Version None)
Quarter: 2012Q2

REPORT INFORMATION
  Report Type: 
  Country: None (occurrence: None)
  Receive Date: 20120503
  Receipt Date: 20120430
  Transmission Date: 20120825
  Serious: Yes (Other)
  Sender: FDA-Public Use
  Company Number: US-PFIZER INC-2012092073

PATIENT
  Sex: Female
  Weight: 94.785 kg

DRUGS (14)
  1. SPIRONOLACTONE [Suspect]
     Indication: BLOOD TESTOSTERONE INCREASED
  2. ALDACTONE [Suspect]
     Indication: BLOOD TESTOSTERONE INCREASED
  3. ADVAIR DISKUS 100/50 [Concomitant]
     Indication: ASTHMA
  4. LEVOTHYROXINE [Concomitant]
     Indication: HYPOTHYROIDISM
     Dosage: 100 UG, UNK
  5. LISINOPRIL [Concomitant]
     Indication: HYPERTENSION
     Dosage: 10 MG, 1X/DAY
     Dates: start: 20030101
  6. PRAVASTATIN [Concomitant]
     Indication: BLOOD CHOLESTEROL INCREASED
     Dosage: 20 MG, 1X/DAY
     Dates: start: 20030101
  7. ALDACTONE [Suspect]
     Indication: VIRILISM
     Dosage: 25 MG, 1X/DAY
     Route: 048
     Dates: start: 19800101
  8. SPIRONOLACTONE [Suspect]
     Indication: VIRILISM
     Dosage: 25 MG, 1X/DAY
     Route: 048
     Dates: end: 20030101
  9. SPIRONOLACTONE [Suspect]
     Indication: POLYCYSTIC OVARIES
     Dosage: 50 MG, 2X/DAY
     Route: 048
     Dates: start: 19900101
  10. VENTOLIN [Concomitant]
     Indication: ASTHMA
  11. ALDACTONE [Suspect]
     Indication: POLYCYSTIC OVARIES
  12. VENTOLIN [Concomitant]
     Indication: CHRONIC OBSTRUCTIVE PULMONARY DISEASE
     Dosage: UNK
     Dates: start: 20030101
  13. LASIX [Concomitant]
     Indication: HYPERTENSION
     Dosage: 40 MG, 1X/DAY
     Dates: start: 20030101
  14. ADVAIR DISKUS 100/50 [Concomitant]
     Indication: CHRONIC OBSTRUCTIVE PULMONARY DISEASE
     Dosage: UNK
     Dates: start: 20030101

REACTIONS (7)
  - TYPE 2 DIABETES MELLITUS [None]
  - INFECTION [None]
  - HYPERTENSION [None]
  - FURUNCLE [None]
  - WRIST FRACTURE [None]
  - SCAR [None]
  - MALAISE [None]
